FAERS Safety Report 12647944 (Version 2)
Quarter: 2016Q3

REPORT INFORMATION
  Report Type: Spontaneous
  Country: JP (occurrence: JP)
  Receive Date: 20160812
  Receipt Date: 20160819
  Transmission Date: 20161109
  Serious: Yes (Death)
  Sender: FDA-Public Use
  Company Number: JP-AMGEN-JPNSP2016105572

PATIENT
  Age: 75 Year
  Sex: Female

DRUGS (4)
  1. G-LASTA [Suspect]
     Active Substance: PEGFILGRASTIM
     Indication: PRODUCT USED FOR UNKNOWN INDICATION
     Dosage: UNK
     Route: 058
     Dates: start: 20160630, end: 20160630
  2. CALSED [Concomitant]
     Indication: SMALL CELL LUNG CANCER
     Dosage: 40 MG, UNK
     Route: 041
     Dates: start: 20160627, end: 20160629
  3. G-LASTA [Suspect]
     Active Substance: PEGFILGRASTIM
     Dosage: UNK
     Route: 058
     Dates: start: 20160722, end: 20160722
  4. CALSED [Concomitant]
     Dosage: 40 MG, UNK
     Route: 041
     Dates: start: 20160719, end: 20160721

REACTIONS (1)
  - Febrile neutropenia [Fatal]

NARRATIVE: CASE EVENT DATE: 20160729
